FAERS Safety Report 20723989 (Version 2)
Quarter: 2022Q2

REPORT INFORMATION
  Report Type: Report from Study
  Country: BR (occurrence: BR)
  Receive Date: 20220419
  Receipt Date: 20220602
  Transmission Date: 20220721
  Serious: Yes (Life-Threatening)
  Sender: FDA-Public Use
  Company Number: BR-NOVARTISPH-PHHY2017BR104702

PATIENT
  Age: 55 Year
  Sex: Male
  Weight: 87 kg

DRUGS (5)
  1. COSENTYX [Suspect]
     Active Substance: SECUKINUMAB
     Indication: Psoriatic arthropathy
     Dosage: 300 MG, UNK
     Route: 058
     Dates: start: 20170601
  2. COSENTYX [Suspect]
     Active Substance: SECUKINUMAB
     Dosage: 150 MG, QMO (2 APPLICATION)
     Route: 058
  3. COSENTYX [Suspect]
     Active Substance: SECUKINUMAB
     Dosage: UNK
     Route: 065
     Dates: start: 20191227
  4. OMEPRAZOLE [Concomitant]
     Active Substance: OMEPRAZOLE
     Indication: Prophylaxis
     Dosage: 25 MG, BID
     Route: 048
  5. CAPTOPIRIL [Concomitant]
     Indication: Hypertension
     Dosage: 25 MG, Q6H
     Route: 048

REACTIONS (20)
  - Feeling abnormal [Recovered/Resolved]
  - Abdominal pain [Not Recovered/Not Resolved]
  - Arthropathy [Unknown]
  - Malaise [Recovered/Resolved]
  - Overweight [Unknown]
  - Fibromyalgia [Unknown]
  - Pruritus [Recovered/Resolved]
  - Heart rate increased [Recovered/Resolved]
  - Abdominal discomfort [Recovered/Resolved]
  - Arthralgia [Unknown]
  - Skin lesion [Unknown]
  - Pain [Unknown]
  - Tremor [Recovered/Resolved]
  - Hyperhidrosis [Recovered/Resolved]
  - Gastrointestinal disorder [Unknown]
  - Malaise [Unknown]
  - Viral infection [Recovering/Resolving]
  - Pyrexia [Recovering/Resolving]
  - Diarrhoea [Recovering/Resolving]
  - Product administration error [Unknown]

NARRATIVE: CASE EVENT DATE: 20171120
